FAERS Safety Report 7482313-2 (Version None)
Quarter: 2011Q2

REPORT INFORMATION
  Report Type: 
  Country: None (occurrence: None)
  Receive Date: 20110516
  Receipt Date: 20110510
  Transmission Date: 20111010
  Serious: Yes (Other)
  Sender: FDA-Public Use
  Company Number: US-PFIZER INC-2011063412

PATIENT
  Sex: Female

DRUGS (2)
  1. CHANTIX [Suspect]
     Indication: TOBACCO USER
     Dosage: UNK
     Route: 048
     Dates: start: 20110301, end: 20110301
  2. SEROQUEL [Concomitant]
     Dosage: 100 MG, 1 TABLET AT BEDTIME
     Route: 048

REACTIONS (2)
  - HALLUCINATION, AUDITORY [None]
  - NAUSEA [None]
